FAERS Safety Report 16101664 (Version 1)
Quarter: 2019Q1

REPORT INFORMATION
  Report Type: Spontaneous
  Country: JP (occurrence: JP)
  Receive Date: 20190321
  Receipt Date: 20190321
  Transmission Date: 20190418
  Serious: Yes (Other)
  Sender: FDA-Public Use
  Company Number: JP-009507513-1903JPN008604

PATIENT
  Age: 58 Year
  Sex: Female

DRUGS (9)
  1. KEITEN [Suspect]
     Active Substance: CEFPIROME SULFATE
     Indication: PYREXIA
     Dosage: 1 GRAM
     Route: 042
     Dates: start: 19971226, end: 19971226
  2. TIENAM FOR INTRAVENOUS DRIP INFUSION 0.25G [Suspect]
     Active Substance: CILASTATIN SODIUM\IMIPENEM
     Dosage: 1 GRAM
     Route: 042
     Dates: start: 19971201, end: 19971225
  3. MINOCYCLINE [Suspect]
     Active Substance: MINOCYCLINE\MINOCYCLINE HYDROCHLORIDE
     Dosage: 200 MILLIGRAM
     Route: 042
     Dates: start: 19980126, end: 19980129
  4. KEITEN [Suspect]
     Active Substance: CEFPIROME SULFATE
     Dosage: 2 GRAM
     Route: 042
     Dates: start: 19971227, end: 19980105
  5. MINOCYCLINE [Suspect]
     Active Substance: MINOCYCLINE\MINOCYCLINE HYDROCHLORIDE
     Dosage: 200 MILLIGRAM
     Route: 042
     Dates: start: 19971201, end: 19980116
  6. KEITEN [Suspect]
     Active Substance: CEFPIROME SULFATE
     Dosage: 2 GRAM
     Route: 042
     Dates: start: 19980113, end: 19980116
  7. CLINDAMYCIN. [Suspect]
     Active Substance: CLINDAMYCIN
     Route: 042
     Dates: start: 19980106, end: 19980112
  8. TIENAM FOR INTRAVENOUS DRIP INFUSION 0.25G [Suspect]
     Active Substance: CILASTATIN SODIUM\IMIPENEM
     Dosage: 0.5 GRAM
     Route: 042
     Dates: start: 19971226, end: 19971226
  9. KEITEN [Suspect]
     Active Substance: CEFPIROME SULFATE
     Dosage: 2 GRAM
     Route: 042
     Dates: start: 19980126, end: 19980129

REACTIONS (2)
  - Hepatocellular injury [Not Recovered/Not Resolved]
  - Oculomucocutaneous syndrome [Not Recovered/Not Resolved]

NARRATIVE: CASE EVENT DATE: 19980105
